FAERS Safety Report 13571943 (Version 1)
Quarter: 2017Q2

REPORT INFORMATION
  Report Type: Spontaneous
  Country: SG (occurrence: SG)
  Receive Date: 20170523
  Receipt Date: 20170523
  Transmission Date: 20170830
  Serious: Yes (Death, Other)
  Sender: FDA-Public Use
  Company Number: SG-JAZZ-2017-SG-006476

PATIENT
  Age: 25 Year
  Sex: Male

DRUGS (5)
  1. DEXAMETHASONE. [Suspect]
     Active Substance: DEXAMETHASONE
     Indication: NATURAL KILLER-CELL LYMPHOBLASTIC LYMPHOMA
  2. ETOPOSIDE. [Suspect]
     Active Substance: ETOPOSIDE
     Indication: NATURAL KILLER-CELL LYMPHOBLASTIC LYMPHOMA
  3. ERWINASE [Suspect]
     Active Substance: ASPARAGINASE ERWINIA CHRYSANTHEMI
     Indication: NATURAL KILLER-CELL LYMPHOBLASTIC LYMPHOMA
  4. METHOTREXATE. [Suspect]
     Active Substance: METHOTREXATE
     Indication: NATURAL KILLER-CELL LYMPHOBLASTIC LYMPHOMA
  5. IFOSFAMIDE. [Suspect]
     Active Substance: IFOSFAMIDE
     Indication: NATURAL KILLER-CELL LYMPHOBLASTIC LYMPHOMA

REACTIONS (2)
  - Hepatitis E [Unknown]
  - Death [Fatal]
